FAERS Safety Report 22528746 (Version 1)
Quarter: 2023Q2

REPORT INFORMATION
  Report Type: Spontaneous
  Country: US (occurrence: None)
  Receive Date: 20230607
  Receipt Date: 20230607
  Transmission Date: 20230721
  Serious: Yes (Other)
  Sender: FDA-Public Use
  Company Number: US-FARMAPROD-202305-1403

PATIENT
  Age: 83 Year
  Sex: Female

DRUGS (18)
  1. OXERVATE [Suspect]
     Active Substance: CENEGERMIN-BKBJ
     Indication: Punctate keratitis
     Route: 047
     Dates: start: 20230419
  2. MULTIVITAMIN GUMMIES [Concomitant]
  3. VITAMIN B12 [Concomitant]
     Active Substance: CYANOCOBALAMIN
  4. MAGNESIUM [Concomitant]
     Active Substance: MAGNESIUM
  5. PREDNISONE [Concomitant]
     Active Substance: PREDNISONE
  6. METOPROLOL SUCCINATE [Concomitant]
     Active Substance: METOPROLOL SUCCINATE
  7. LISINOPRIL [Concomitant]
     Active Substance: LISINOPRIL
  8. PRILOSEC OTC [Concomitant]
     Active Substance: OMEPRAZOLE MAGNESIUM
     Dosage: DELAYED RELEASE
  9. VITAMIN D3 [Concomitant]
     Active Substance: CHOLECALCIFEROL
  10. FISH OIL [Concomitant]
     Active Substance: FISH OIL
  11. LUTEIN [Concomitant]
     Active Substance: LUTEIN
  12. TOBRADEX [Concomitant]
     Active Substance: DEXAMETHASONE\TOBRAMYCIN
     Dosage: 0.3%-0.1 %
  13. TIMOLOL MALEATE [Concomitant]
     Active Substance: TIMOLOL MALEATE
  14. LATANOPROST [Concomitant]
     Active Substance: LATANOPROST
  15. CLOPIDOGREL [Concomitant]
     Active Substance: CLOPIDOGREL BISULFATE
  16. ASPIRIN [Concomitant]
     Active Substance: ASPIRIN
  17. ATORVASTATIN CALCIUM [Concomitant]
     Active Substance: ATORVASTATIN CALCIUM
  18. FENOFIBRATE [Concomitant]
     Active Substance: FENOFIBRATE

REACTIONS (4)
  - Cerebrovascular accident [Unknown]
  - Balance disorder [Unknown]
  - Headache [Recovered/Resolved]
  - Eye pain [Unknown]

NARRATIVE: CASE EVENT DATE: 20230504
